FAERS Safety Report 9630709 (Version 1)
Quarter: 2013Q4

REPORT INFORMATION
  Report Type: Spontaneous
  Country: US (occurrence: None)
  Receive Date: 20131016
  Receipt Date: 20131016
  Transmission Date: 20140711
  Serious: Yes (Other)
  Sender: FDA-Public Use
  Company Number: 2013SA100535

PATIENT
  Sex: Female

DRUGS (1)
  1. CAPZASIN [Suspect]
     Indication: ARTHRITIS
     Dosage: 1.5 OUNCE

REACTIONS (2)
  - Burning sensation [None]
  - Pain [None]
